FAERS Safety Report 5162233-9 (Version None)
Quarter: 2006Q4

REPORT INFORMATION
  Report Type: 
  Country: None (occurrence: None)
  Receive Date: 20061121
  Receipt Date: 20061107
  Transmission Date: 20070319
  Serious: Yes (Other)
  Sender: FDA-Public Use
  Company Number: 2006ADE/DICLO-026

PATIENT
  Age: 69 Year
  Sex: Male

DRUGS (2)
  1. DICLOFENAC SLOW RELEASE [Suspect]
     Indication: CANCER PAIN
     Dosage: 200 MG, DAILY, ORAL
     Route: 048
  2. TELMISARTAN [Concomitant]

REACTIONS (2)
  - COLITIS ULCERATIVE [None]
  - RECTAL HAEMORRHAGE [None]
